FAERS Safety Report 22212342 (Version 1)
Quarter: 2023Q2

REPORT INFORMATION
  Report Type: Spontaneous
  Country: US (occurrence: US)
  Receive Date: 20230414
  Receipt Date: 20230414
  Transmission Date: 20230722
  Serious: No
  Sender: FDA-Public Use
  Company Number: US-FreseniusKabi-FK202304490

PATIENT

DRUGS (1)
  1. DIPHENHYDRAMINE HYDROCHLORIDE [Suspect]
     Active Substance: DIPHENHYDRAMINE HYDROCHLORIDE
     Indication: Product used for unknown indication
     Dosage: VIAL SINGLE DOSE 1 ML?POTENCY: 50 MG IN 1 ML
     Route: 042

REACTIONS (4)
  - Throat irritation [Unknown]
  - Burning sensation [Unknown]
  - Panic reaction [Unknown]
  - Dyspnoea [Unknown]
